FAERS Safety Report 4339723-1 (Version None)
Quarter: 2004Q1

REPORT INFORMATION
  Report Type: 
  Country: None (occurrence: None)
  Receive Date: 20040329
  Receipt Date: 20040216
  Transmission Date: 20041129
  Serious: No
  Sender: FDA-Public Use
  Company Number: 04P-163-0249570-00

PATIENT
  Age: 49 Year
  Sex: Female

DRUGS (12)
  1. HUMIRA [Suspect]
     Indication: RHEUMATOID ARTHRITIS
     Dosage: 40 MG, 1 IN 2 WK, SUBCUTANEOUS
     Route: 058
     Dates: start: 20030204
  2. ESTROTEST [Concomitant]
  3. ALLEGRA-D [Concomitant]
  4. TRIAM HCTZ [Concomitant]
  5. LEVOTHYROXINE SODIUM [Concomitant]
  6. POTASSIUM [Concomitant]
  7. PREDNISONE [Concomitant]
  8. MELOXICAM [Concomitant]
  9. ISONIAZID [Concomitant]
  10. POTASSIUM CHLORIDE [Concomitant]
  11. TOCOPHEROL CONCENTRATE CAP [Concomitant]
  12. CO Q10 [Concomitant]

REACTIONS (4)
  - ARTHRALGIA [None]
  - INJECTION SITE ERYTHEMA [None]
  - INJECTION SITE STINGING [None]
  - INJECTION SITE WARMTH [None]
